FAERS Safety Report 19294938 (Version 1)
Quarter: 2021Q2

REPORT INFORMATION
  Report Type: Spontaneous
  Country: FR (occurrence: FR)
  Receive Date: 20210524
  Receipt Date: 20210524
  Transmission Date: 20210717
  Serious: Yes (Death, Life-Threatening)
  Sender: FDA-Public Use
  Company Number: FR-BAUSCH-BL-2021-016959

PATIENT
  Age: 55 Year
  Sex: Male

DRUGS (2)
  1. METFORMINE [Suspect]
     Active Substance: METFORMIN HYDROCHLORIDE
     Indication: TYPE 2 DIABETES MELLITUS
     Route: 065
     Dates: start: 2019, end: 20210308
  2. OMNIPAQUE [Interacting]
     Active Substance: IOHEXOL
     Indication: EMBOLIC STROKE
     Dosage: IN TOTAL
     Route: 065
     Dates: start: 20210306, end: 20210308

REACTIONS (2)
  - Metabolic acidosis [Recovered/Resolved]
  - Acute kidney injury [Fatal]

NARRATIVE: CASE EVENT DATE: 20210308
